FAERS Safety Report 8369035-0 (Version None)
Quarter: 2012Q2

REPORT INFORMATION
  Report Type: 
  Country: None (occurrence: None)
  Receive Date: 20120518
  Receipt Date: 20120503
  Transmission Date: 20120825
  Serious: Yes (Other)
  Sender: FDA-Public Use
  Company Number: CA-ROCHE-1066021

PATIENT
  Age: 80 Year
  Sex: Male
  Weight: 67.5 kg

DRUGS (13)
  1. PRILOSEC [Concomitant]
     Dates: start: 19960101
  2. ALENDRONATE SODIUM [Concomitant]
     Dates: start: 19910101
  3. MULTI-VITAMIN [Concomitant]
     Dates: start: 19860101
  4. AVODART [Concomitant]
     Dates: start: 20010101
  5. ENTOCORT EC [Concomitant]
     Dates: start: 19910101
  6. FERROUS GLUCONATE [Concomitant]
     Dates: start: 19910101
  7. VEMURAFENIB [Suspect]
     Indication: METASTATIC MALIGNANT MELANOMA
     Dosage: LAST DOSE PRIOR TO SAE: 01 MAY 2012
     Route: 048
     Dates: start: 20120416
  8. FLURAZEPAM [Concomitant]
     Dates: start: 20080101
  9. FLOMAX [Concomitant]
     Dates: start: 20080101
  10. IBUPROFEN [Concomitant]
     Dates: start: 19960101
  11. CHOLECALCIFEROL [Concomitant]
     Dates: start: 20090901
  12. VITAMIN B-12 [Concomitant]
     Dates: start: 20010101
  13. CALCIUM [Concomitant]
     Dates: start: 20010101

REACTIONS (1)
  - AGE-RELATED MACULAR DEGENERATION [None]
